FAERS Safety Report 5668882-3 (Version None)
Quarter: 2008Q1

REPORT INFORMATION
  Report Type: 
  Country: None (occurrence: None)
  Receive Date: 20080317
  Receipt Date: 20080305
  Transmission Date: 20080703
  Serious: Yes (Other)
  Sender: FDA-Public Use
  Company Number: US-BAYER-US-2007-035656

PATIENT
  Age: 28 Year
  Sex: Female
  Weight: 64 kg

DRUGS (3)
  1. MIRENA [Suspect]
     Indication: CONTRACEPTION
     Route: 015
     Dates: start: 20060109, end: 20080205
  2. ORTHO CYCLEN-21 [Concomitant]
  3. SPRINTEC [Concomitant]

REACTIONS (18)
  - ABDOMINAL PAIN [None]
  - AMENORRHOEA [None]
  - DYSPAREUNIA [None]
  - FATIGUE [None]
  - HYPERHIDROSIS [None]
  - IUCD COMPLICATION [None]
  - LETHARGY [None]
  - LOSS OF LIBIDO [None]
  - MALAISE [None]
  - MENSTRUATION IRREGULAR [None]
  - METRORRHAGIA [None]
  - MIGRAINE [None]
  - QUALITY OF LIFE DECREASED [None]
  - SUPPRESSED LACTATION [None]
  - UTERINE PAIN [None]
  - VAGINAL HAEMORRHAGE [None]
  - WEIGHT INCREASED [None]
  - WEIGHT LOSS POOR [None]
